FAERS Safety Report 13207964 (Version 11)
Quarter: 2020Q2

REPORT INFORMATION
  Report Type: Report from Study
  Country: US (occurrence: US)
  Receive Date: 20170209
  Receipt Date: 20200401
  Transmission Date: 20200713
  Serious: Yes (Hospitalization, Other)
  Sender: FDA-Public Use
  Company Number: US-SA-2016SA089400

PATIENT
  Age: 38 Year
  Sex: Female
  Weight: 58.96 kg

DRUGS (7)
  1. MEDROXYPROGESTERONE ACETATE. [Concomitant]
     Active Substance: MEDROXYPROGESTERONE ACETATE
     Dosage: 10 MG, QD
     Route: 048
  2. LEVETIRACETAM. [Concomitant]
     Active Substance: LEVETIRACETAM
     Dosage: 500 MG, BID
     Route: 048
  3. ALEMTUZUMAB [Suspect]
     Active Substance: ALEMTUZUMAB
     Indication: MULTIPLE SCLEROSIS
     Dosage: 12 MG,QD
     Route: 041
     Dates: start: 20160418, end: 20160422
  4. SILVER SULFADIAZIN [Concomitant]
     Active Substance: SILVER SULFADIAZINE
     Dosage: UNK UNK, QD
     Route: 061
  5. CIPRO [Concomitant]
     Active Substance: CIPROFLOXACIN HYDROCHLORIDE
     Dosage: 500 MG
     Route: 048
     Dates: end: 20190131
  6. BACLOFEN. [Concomitant]
     Active Substance: BACLOFEN
     Dosage: 20 MG, BID
     Route: 048
  7. CLOBETASOL PROPIONATE. [Concomitant]
     Active Substance: CLOBETASOL PROPIONATE
     Dosage: UNK UNK, QD
     Route: 061

REACTIONS (17)
  - Immune thrombocytopenia [Recovering/Resolving]
  - Gingival bleeding [Recovering/Resolving]
  - Lymphocyte count abnormal [Unknown]
  - Unevaluable event [Unknown]
  - Major depression [Unknown]
  - Lip dry [Not Recovered/Not Resolved]
  - Anaemia [Recovering/Resolving]
  - Rash [Not Recovered/Not Resolved]
  - Weight increased [Unknown]
  - Petechiae [Unknown]
  - Immunodeficiency [Unknown]
  - Contusion [Recovering/Resolving]
  - Menorrhagia [Recovering/Resolving]
  - Bladder dysfunction [Unknown]
  - Oral mucosal blistering [Recovering/Resolving]
  - Muscle spasms [Unknown]
  - Platelet count decreased [Recovering/Resolving]

NARRATIVE: CASE EVENT DATE: 2016
